FAERS Safety Report 10232574 (Version 1)
Quarter: 2014Q2

REPORT INFORMATION
  Report Type: Spontaneous
  Country: US (occurrence: None)
  Receive Date: 20140611
  Receipt Date: 20140611
  Transmission Date: 20141212
  Serious: No
  Sender: FDA-Public Use
  Company Number: None

PATIENT
  Age: 61 Year
  Sex: Male

DRUGS (1)
  1. TRAZODONE [Suspect]
     Indication: SLEEP DISORDER
     Dosage: 1 TAB, AT BEDTIME, TAKEN BY MOUTH
     Route: 048
     Dates: start: 20140602, end: 20140609

REACTIONS (6)
  - Blood pressure decreased [None]
  - Dysgeusia [None]
  - Confusional state [None]
  - Hot flush [None]
  - Irritability [None]
  - Wrong technique in drug usage process [None]
